FAERS Safety Report 7638953-0 (Version None)
Quarter: 2011Q3

REPORT INFORMATION
  Report Type: 
  Country: None (occurrence: None)
  Receive Date: 20110721
  Receipt Date: 20110708
  Transmission Date: 20111222
  Serious: Yes (Hospitalization, Other)
  Sender: FDA-Public Use
  Company Number: 735011

PATIENT
  Age: 45 Year
  Sex: Male

DRUGS (9)
  1. CARBOPLATIN [Concomitant]
  2. VALPROATE SODIUM [Concomitant]
  3. NEUPOGEN [Suspect]
     Indication: CHEMOTHERAPY
     Dosage: SUBCUTANEOUS
     Route: 058
  4. PHENYTOIN [Suspect]
     Indication: PRODUCT USED FOR UNKNOWN INDICATION
     Dosage: 50 MG MILLIGRAM(S)
     Dates: end: 20090814
  5. AVASTIN [Suspect]
     Indication: GLIOBLASTOMA MULTIFORME
     Dosage: 1287.5 MG MILLIGRAM(S) ( 21 DAY ) INTRAVENOUS (NOT OTHERWISE SPECIFIED)
     Route: 042
     Dates: start: 20090721
  6. METOCLOPRAMIDE [Concomitant]
  7. NEULASTA [Suspect]
     Indication: CHEMOTHERAPY
     Dosage: 6 MG MILLIGRAM(S) ( 21 DAY ) SUBCUTANEOUS 07222008
     Route: 058
  8. DEXAMETHASONE [Concomitant]
  9. ONDANSETRON [Suspect]

REACTIONS (10)
  - DERMATITIS ALLERGIC [None]
  - OFF LABEL USE [None]
  - DEEP VEIN THROMBOSIS [None]
  - BODY TEMPERATURE INCREASED [None]
  - PETECHIAE [None]
  - RASH PRURITIC [None]
  - IMPETIGO [None]
  - CONFUSIONAL STATE [None]
  - CYTOKINE STORM [None]
  - DELIRIUM [None]
